FAERS Safety Report 19135915 (Version 1)
Quarter: 2021Q2

REPORT INFORMATION
  Report Type: Report from Study
  Country: US (occurrence: US)
  Receive Date: 20210414
  Receipt Date: 20210414
  Transmission Date: 20210717
  Serious: Yes (Other)
  Sender: FDA-Public Use
  Company Number: US-JNJFOC-20210407633

PATIENT
  Age: 32 Year
  Sex: Female
  Weight: 68.2 kg

DRUGS (4)
  1. LASIX [Concomitant]
     Active Substance: FUROSEMIDE
     Indication: PRODUCT USED FOR UNKNOWN INDICATION
     Route: 065
  2. ALDACTONE [Concomitant]
     Active Substance: SPIRONOLACTONE
     Indication: PRODUCT USED FOR UNKNOWN INDICATION
     Route: 065
  3. TADALAFIL. [Concomitant]
     Active Substance: TADALAFIL
     Indication: PRODUCT USED FOR UNKNOWN INDICATION
  4. MACITENTAN [Suspect]
     Active Substance: MACITENTAN
     Indication: PULMONARY ARTERIAL HYPERTENSION
     Route: 048

REACTIONS (8)
  - Malaise [Unknown]
  - Weight increased [Unknown]
  - Exercise tolerance decreased [Unknown]
  - Syncope [Unknown]
  - Fatigue [Unknown]
  - Cough [Unknown]
  - Oedema peripheral [Unknown]
  - Dizziness [Unknown]

NARRATIVE: CASE EVENT DATE: 202103
